FAERS Safety Report 7006638-X (Version None)
Quarter: 2010Q3

REPORT INFORMATION
  Report Type: 
  Country: None (occurrence: None)
  Receive Date: 20100921
  Receipt Date: 20100921
  Transmission Date: 20110219
  Serious: Yes (Other)
  Sender: FDA-Public Use
  Company Number: None

PATIENT
  Sex: Male

DRUGS (2)
  1. TARCEVA [Suspect]
     Indication: LUNG NEOPLASM MALIGNANT
     Dosage: 150MG DAILY BY MOUTH
     Route: 048
     Dates: start: 20100808, end: 20100823
  2. TARCEVA [Suspect]
     Indication: LUNG NEOPLASM MALIGNANT
     Dosage: 150MG DAILY BY MOUTH
     Route: 048
     Dates: start: 20100819

REACTIONS (2)
  - LIP SWELLING [None]
  - SWELLING FACE [None]
